FAERS Safety Report 9249715 (Version 2)
Quarter: 2013Q2

REPORT INFORMATION
  Report Type: Spontaneous
  Country: US (occurrence: US)
  Receive Date: 20130423
  Receipt Date: 20130513
  Transmission Date: 20140414
  Serious: Yes (Death)
  Sender: FDA-Public Use
  Company Number: US-PFIZER INC-2013123405

PATIENT
  Age: 60 Year
  Sex: Male

DRUGS (2)
  1. REVATIO [Suspect]
     Indication: CONNECTIVE TISSUE DISORDER
     Dosage: 20 MG, 3X/DAY
     Dates: start: 20121023
  2. REVATIO [Suspect]
     Indication: PULMONARY HYPERTENSION

REACTIONS (4)
  - Scleroderma [Fatal]
  - Pulmonary arterial pressure increased [Fatal]
  - Pulmonary hypertension [Fatal]
  - Off label use [Unknown]
